FAERS Safety Report 8819749 (Version 1)
Quarter: 2012Q4

REPORT INFORMATION
  Report Type: 
  Country: US (occurrence: US)
  Receive Date: 20121001
  Receipt Date: 20121001
  Transmission Date: 20130627
  Serious: Yes (Other)
  Sender: FDA-Public Use
  Company Number: US-ROCHE-1123702

PATIENT
  Sex: Female

DRUGS (4)
  1. HERCEPTIN [Suspect]
     Indication: BREAST CANCER FEMALE
     Route: 065
  2. XELODA [Suspect]
     Indication: BREAST CANCER FEMALE
     Route: 065
     Dates: end: 200610
  3. XELODA [Suspect]
     Route: 065
     Dates: start: 200711
  4. CELEBREX [Concomitant]

REACTIONS (6)
  - Alopecia [Unknown]
  - Metastases to lung [Unknown]
  - Abdominal neoplasm [Unknown]
  - Hepatic lesion [Unknown]
  - Osteosclerosis [Unknown]
  - Disease progression [Unknown]
